FAERS Safety Report 6865499-X (Version None)
Quarter: 2010Q3

REPORT INFORMATION
  Report Type: 
  Country: None (occurrence: None)
  Receive Date: 20100721
  Receipt Date: 20080516
  Transmission Date: 20110219
  Serious: Yes (Other)
  Sender: FDA-Public Use
  Company Number: US-PFIZER INC-2008035415

PATIENT
  Sex: Female
  Weight: 104.5 kg

DRUGS (9)
  1. CHANTIX [Suspect]
     Indication: SMOKING CESSATION THERAPY
     Dates: start: 20080401
  2. SYNTHROID [Concomitant]
  3. LITHIUM [Concomitant]
  4. VENLAFAXINE [Concomitant]
  5. TRAZODONE HYDROCHLORIDE [Concomitant]
  6. ESTROGENS [Concomitant]
  7. GABAPENTIN [Concomitant]
  8. OMEPRAZOLE [Concomitant]
  9. CALCIUM [Concomitant]

REACTIONS (6)
  - HYPERPHAGIA [None]
  - INCORRECT DOSE ADMINISTERED [None]
  - IRRITABILITY [None]
  - NAUSEA [None]
  - SUICIDAL IDEATION [None]
  - VOMITING [None]
